FAERS Safety Report 15477576 (Version 1)
Quarter: 2018Q4

REPORT INFORMATION
  Report Type: Spontaneous
  Country: US (occurrence: US)
  Receive Date: 20181009
  Receipt Date: 20181009
  Transmission Date: 20190205
  Serious: No
  Sender: FDA-Public Use
  Company Number: US-IPSEN BIOPHARMACEUTICALS, INC.-2018-04010

PATIENT

DRUGS (2)
  1. BOTULINUM TOXIN TYPE A NOS [Suspect]
     Active Substance: BOTULINUM TOXIN TYPE A
     Indication: OFF LABEL USE
  2. BOTULINUM TOXIN TYPE A NOS [Suspect]
     Active Substance: BOTULINUM TOXIN TYPE A
     Indication: STRABISMUS
     Dosage: 2-5 UNITS PER MEDIAL RECTUS MUSCLE
     Route: 030

REACTIONS (5)
  - Muscle spasms [Unknown]
  - Drug ineffective for unapproved indication [Unknown]
  - Off label use [Unknown]
  - Eyelid ptosis [Unknown]
  - Heterophoria [Unknown]
